FAERS Safety Report 17465763 (Version 1)
Quarter: 2020Q1

REPORT INFORMATION
  Report Type: Other
  Country: US (occurrence: US)
  Receive Date: 20200227
  Receipt Date: 20200227
  Transmission Date: 20200409
  Serious: Yes (Other)
  Sender: FDA-Public Use
  Company Number: US-INTERCEPT-PM2020000406

PATIENT
  Sex: Female

DRUGS (2)
  1. OCALIVA [Suspect]
     Active Substance: OBETICHOLIC ACID
     Dosage: 5 MG, QD
     Route: 048
     Dates: start: 20200127
  2. OCALIVA [Suspect]
     Active Substance: OBETICHOLIC ACID
     Indication: LIVER DISORDER
     Dosage: UNK
     Route: 048
     Dates: start: 201904, end: 201905

REACTIONS (6)
  - Therapy cessation [Recovered/Resolved]
  - Pancreatitis [Not Recovered/Not Resolved]
  - Weight decreased [Recovered/Resolved]
  - Fluid retention [Not Recovered/Not Resolved]
  - Off label use [Not Recovered/Not Resolved]
  - Decreased appetite [Recovered/Resolved]
